FAERS Safety Report 6538759-X (Version None)
Quarter: 2010Q1

REPORT INFORMATION
  Report Type: 
  Country: None (occurrence: None)
  Receive Date: 20100114
  Receipt Date: 20100114
  Transmission Date: 20100710
  Serious: Yes (Other)
  Sender: FDA-Public Use
  Company Number: None

PATIENT
  Age: 48 Year
  Sex: Female
  Weight: 88.4514 kg

DRUGS (2)
  1. METOPROLOL TARTRATE [Suspect]
     Indication: HYPERTENSION
     Dosage: 100MG 2X'S DAILY PO
     Route: 048
     Dates: start: 20090330, end: 20100111
  2. METOPROLOL SUCCINATE EXTENDED RELEASE [Suspect]
     Indication: HYPERTENSION
     Dosage: 100MG 1X DAILY PO
     Route: 048
     Dates: start: 20080829, end: 20090329

REACTIONS (2)
  - ALOPECIA [None]
  - INSOMNIA [None]
